FAERS Safety Report 13442424 (Version 1)
Quarter: 2017Q2

REPORT INFORMATION
  Report Type: Spontaneous
  Country: US (occurrence: US)
  Receive Date: 20170414
  Receipt Date: 20170414
  Transmission Date: 20170830
  Serious: No
  Sender: FDA-Public Use
  Company Number: US-AMGEN-USASP2017053861

PATIENT
  Sex: Male

DRUGS (1)
  1. ENBREL [Suspect]
     Active Substance: ETANERCEPT
     Indication: SPINAL OSTEOARTHRITIS
     Dosage: 50 MG, QWK
     Route: 065

REACTIONS (5)
  - Mobility decreased [Unknown]
  - Drug dose omission [Unknown]
  - Off label use [Unknown]
  - Arthropathy [Unknown]
  - Spondylitis [Unknown]

NARRATIVE: CASE EVENT DATE: 2016
